FAERS Safety Report 8805191 (Version 2)
Quarter: 2015Q2

REPORT INFORMATION
  Report Type: Report from Study
  Country: US (occurrence: US)
  Receive Date: 20120924
  Receipt Date: 20150624
  Transmission Date: 20150821
  Serious: Yes (Death, Hospitalization)
  Sender: FDA-Public Use
  Company Number: US-ROCHE-1123263

PATIENT
  Sex: Female
  Weight: 108 kg

DRUGS (25)
  1. BENADRYL [Concomitant]
     Active Substance: DIPHENHYDRAMINE HYDROCHLORIDE
     Route: 042
  2. AVASTIN [Suspect]
     Active Substance: BEVACIZUMAB
     Indication: OVARIAN CANCER
     Route: 042
     Dates: start: 20041130
  3. CARBOPLATIN. [Concomitant]
     Active Substance: CARBOPLATIN
  4. PHENERGAN [Concomitant]
     Active Substance: PROMETHAZINE HYDROCHLORIDE
     Route: 042
  5. PRILOSEC [Concomitant]
     Active Substance: OMEPRAZOLE MAGNESIUM
     Route: 065
  6. VAGIFEM [Concomitant]
     Active Substance: ESTRADIOL
     Route: 048
  7. EXCEDRIN (UNITED STATES) [Concomitant]
     Indication: MIGRAINE
  8. ALOXI [Concomitant]
     Active Substance: PALONOSETRON HYDROCHLORIDE
     Route: 065
  9. HEPARIN [Concomitant]
     Active Substance: HEPARIN SODIUM
     Route: 065
  10. LEUCOVORIN [Concomitant]
     Active Substance: LEUCOVORIN
     Route: 042
  11. NEURONTIN [Concomitant]
     Active Substance: GABAPENTIN
     Route: 065
  12. NAVELBINE [Concomitant]
     Active Substance: VINORELBINE TARTRATE
  13. CLONIDINE PATCH [Concomitant]
  14. AMBIEN [Concomitant]
     Active Substance: ZOLPIDEM TARTRATE
     Dosage: 5-10MG
     Route: 065
  15. MS CONTIN [Concomitant]
     Active Substance: MORPHINE SULFATE
  16. 5-FLUOROURACIL [Concomitant]
     Active Substance: FLUOROURACIL
     Route: 042
  17. TAXOL [Concomitant]
     Active Substance: PACLITAXEL
  18. AROMASIN [Concomitant]
     Active Substance: EXEMESTANE
  19. AVASTIN [Suspect]
     Active Substance: BEVACIZUMAB
     Indication: HAEMATOLOGICAL MALIGNANCY
  20. PREDNISONE. [Concomitant]
     Active Substance: PREDNISONE
     Route: 042
  21. PAXIL (UNITED STATES) [Concomitant]
     Route: 065
  22. TYLENOL [Concomitant]
     Active Substance: ACETAMINOPHEN
  23. DEXAMETHASONE. [Concomitant]
     Active Substance: DEXAMETHASONE
     Route: 065
  24. GEMZAR [Concomitant]
     Active Substance: GEMCITABINE HYDROCHLORIDE
  25. CELEBREX [Concomitant]
     Active Substance: CELECOXIB
     Route: 065

REACTIONS (12)
  - Fatigue [Unknown]
  - Vomiting [Unknown]
  - Flatulence [Unknown]
  - Off label use [Unknown]
  - Small intestinal obstruction [Unknown]
  - Death [Fatal]
  - Abdominal pain [Unknown]
  - Malaise [Unknown]
  - Dyspnoea [Unknown]
  - Nausea [Unknown]
  - Oedema peripheral [Unknown]
  - Cough [Unknown]
